FAERS Safety Report 4832112-2 (Version None)
Quarter: 2005Q4

REPORT INFORMATION
  Report Type: 
  Country: None (occurrence: None)
  Receive Date: 20051114
  Receipt Date: 20050810
  Transmission Date: 20060501
  Serious: Yes (Death, Hospitalization)
  Sender: FDA-Public Use
  Company Number: ES-2005-011109

PATIENT
  Age: 45 Year
  Sex: Male
  Weight: 70 kg

DRUGS (6)
  1. ILOPROST AEROSOL (ILOPROST AEROSOL (SH L00401N) INHALER [Suspect]
     Indication: PULMONARY HYPERTENSION
     Dosage: SEE IMAGE
     Route: 055
     Dates: start: 20000627, end: 20000915
  2. ILOPROST AEROSOL (ILOPROST AEROSOL (SH L00401N) INHALER [Suspect]
     Indication: PULMONARY HYPERTENSION
     Dosage: SEE IMAGE
     Route: 055
     Dates: end: 20010112
  3. ACENOCOUMAROL (ACENOCOUMAROL) [Concomitant]
  4. OXYGEN (OXYGEN) [Concomitant]
  5. DIGOXIN [Concomitant]
  6. SPIRONOLACTONE [Concomitant]

REACTIONS (5)
  - CONCOMITANT DISEASE PROGRESSION [None]
  - CONDITION AGGRAVATED [None]
  - PULMONARY HYPERTENSION [None]
  - SUDDEN DEATH [None]
  - SYNCOPE [None]
